FAERS Safety Report 20694900 (Version 6)
Quarter: 2022Q2

REPORT INFORMATION
  Report Type: Report from Study
  Country: CN (occurrence: None)
  Receive Date: 20220411
  Receipt Date: 20220606
  Transmission Date: 20220720
  Serious: Yes (Hospitalization)
  Sender: FDA-Public Use
  Company Number: CN-Eisai Medical Research-EC-2022-112667

PATIENT
  Age: 56 Year
  Sex: Male
  Weight: 65 kg

DRUGS (7)
  1. LENVATINIB [Suspect]
     Active Substance: LENVATINIB
     Indication: Renal cell carcinoma
     Route: 048
     Dates: start: 20220317, end: 20220331
  2. LENVATINIB [Suspect]
     Active Substance: LENVATINIB
     Route: 048
     Dates: start: 20220421
  3. PEMBROLIZUMAB [Suspect]
     Active Substance: PEMBROLIZUMAB
     Indication: Renal cell carcinoma
     Route: 041
     Dates: start: 20220317, end: 20220317
  4. PEMBROLIZUMAB [Suspect]
     Active Substance: PEMBROLIZUMAB
     Route: 041
     Dates: start: 20220428
  5. BELZUTIFAN [Suspect]
     Active Substance: BELZUTIFAN
     Indication: Renal cell carcinoma
     Route: 048
     Dates: start: 20220317, end: 20220401
  6. BELZUTIFAN [Suspect]
     Active Substance: BELZUTIFAN
     Route: 048
     Dates: start: 20220421
  7. AMLODIPINE BESYLATE [Concomitant]
     Active Substance: AMLODIPINE BESYLATE
     Dates: start: 202203

REACTIONS (2)
  - Hyponatraemia [Recovered/Resolved with Sequelae]
  - Blood chloride decreased [Not Recovered/Not Resolved]

NARRATIVE: CASE EVENT DATE: 20220402
